FAERS Safety Report 6771652-6 (Version None)
Quarter: 2010Q2

REPORT INFORMATION
  Report Type: 
  Country: None (occurrence: None)
  Receive Date: 20100611
  Receipt Date: 20100607
  Transmission Date: 20101027
  Serious: Yes (Other)
  Sender: FDA-Public Use
  Company Number: 2010SP031943

PATIENT
  Age: 56 Year
  Sex: Male

DRUGS (1)
  1. DIPROPHOS (BETAMETHASONE SODIUM PHOSPHATE/ DIPROPIONATE /00582101/) [Suspect]
     Indication: EPICONDYLITIS
     Dosage: 1 ML;ONCE
     Dates: start: 20100101, end: 20100101

REACTIONS (2)
  - ATRIAL FIBRILLATION [None]
  - TACHYCARDIA [None]
